FAERS Safety Report 13831623 (Version 1)
Quarter: 2017Q3

REPORT INFORMATION
  Report Type: Spontaneous
  Country: TW (occurrence: TW)
  Receive Date: 20170803
  Receipt Date: 20170803
  Transmission Date: 20171127
  Serious: Yes (Other)
  Sender: FDA-Public Use
  Company Number: TW-PFIZER INC-2016357524

PATIENT
  Age: 31 Year
  Sex: Male

DRUGS (2)
  1. BENEFIX [Suspect]
     Active Substance: COAGULATION FACTOR IX RECOMBINANT HUMAN\ISOPROPYL ALCOHOL
     Indication: SPONTANEOUS HAEMORRHAGE
     Dosage: 4000 IU, AS NEEDED DURING BLEEDS (ON-DEMAND USE)
     Route: 042
     Dates: end: 2016
  2. BENEFIX [Suspect]
     Active Substance: COAGULATION FACTOR IX RECOMBINANT HUMAN\ISOPROPYL ALCOHOL
     Dosage: 5000 IU, AS NEEDED DURING BLEEDS (ON-DEMAND USE)
     Route: 042
     Dates: start: 2016

REACTIONS (7)
  - Myalgia [Unknown]
  - Arthralgia [Unknown]
  - Contusion [Recovered/Resolved]
  - Haemarthrosis [Recovered/Resolved]
  - Joint swelling [Unknown]
  - Injury [Unknown]
  - Muscle swelling [Unknown]

NARRATIVE: CASE EVENT DATE: 20160720
